FAERS Safety Report 9189570 (Version 1)
Quarter: 2013Q1

REPORT INFORMATION
  Report Type: Spontaneous
  Country: FR (occurrence: FR)
  Receive Date: 20130326
  Receipt Date: 20130326
  Transmission Date: 20140127
  Serious: Yes (Death, Hospitalization, Other)
  Sender: FDA-Public Use
  Company Number: FR-ELI_LILLY_AND_COMPANY-FR201303005829

PATIENT
  Age: 80 Year
  Sex: Female

DRUGS (1)
  1. FORSTEO [Suspect]
     Indication: OSTEOPOROSIS
     Dosage: 20 UG, QD
     Route: 058
     Dates: start: 20110901

REACTIONS (8)
  - Acute pulmonary oedema [Fatal]
  - Pulmonary embolism [Fatal]
  - Pleural effusion [Fatal]
  - Arrhythmia [Fatal]
  - Fall [Unknown]
  - Ilium fracture [Unknown]
  - Haemoglobin decreased [Unknown]
  - Haematoma [Unknown]
